APPROVED DRUG PRODUCT: TIMOPTIC IN OCUDOSE
Active Ingredient: TIMOLOL MALEATE
Strength: EQ 0.25% BASE
Dosage Form/Route: SOLUTION/DROPS;OPHTHALMIC
Application: N019463 | Product #001 | TE Code: AT3
Applicant: BAUSCH AND LOMB INC
Approved: Nov 5, 1986 | RLD: Yes | RS: Yes | Type: RX